FAERS Safety Report 4590618-8 (Version None)
Quarter: 2005Q1

REPORT INFORMATION
  Report Type: 
  Country: None (occurrence: None)
  Receive Date: 20050222
  Receipt Date: 20050222
  Transmission Date: 20050727
  Serious: No
  Sender: FDA-Public Use
  Company Number: None

PATIENT
  Age: 57 Year
  Sex: Female

DRUGS (1)
  1. INDERAL LA [Suspect]
     Indication: TREMOR
     Dosage: 80 MG, 1 A DAY

REACTIONS (1)
  - NO ADVERSE EFFECT [None]
